FAERS Safety Report 8592423-4 (Version None)
Quarter: 2012Q3

REPORT INFORMATION
  Report Type: 
  Country: None (occurrence: None)
  Receive Date: 20120814
  Receipt Date: 20120807
  Transmission Date: 20120928
  Serious: Yes (Hospitalization, Disabling, Other)
  Sender: FDA-Public Use
  Company Number: US-009507513-1110USA01314

PATIENT

DRUGS (10)
  1. CLARITIN [Concomitant]
     Indication: HYPERSENSITIVITY
     Route: 048
     Dates: start: 19980101, end: 20020101
  2. ZESTRIL [Concomitant]
     Indication: HYPERTENSION
     Route: 048
  3. METOPROLOL [Concomitant]
     Indication: HYPERTENSION
  4. NAPROSYN [Concomitant]
     Indication: ARTHRITIS
  5. ATIVAN [Concomitant]
     Indication: ANXIETY
  6. FOSAMAX [Suspect]
     Indication: OSTEOPOROSIS
     Dosage: 5 MG, UNK
     Route: 048
     Dates: start: 20020201, end: 20030301
  7. ALLEGRA [Concomitant]
     Indication: HYPERSENSITIVITY
     Route: 048
     Dates: start: 20030101, end: 20040101
  8. FOSAMAX [Suspect]
     Dosage: 70 MG, QW
     Route: 048
     Dates: start: 20030401, end: 20070501
  9. FOSAMAX [Suspect]
     Indication: OSTEOPENIA
     Dosage: 10 MG, UNK
     Route: 048
     Dates: start: 19980701, end: 20020101
  10. FOSAMAX [Suspect]
     Dosage: UNK
     Route: 048

REACTIONS (77)
  - DIZZINESS [None]
  - GASTROOESOPHAGEAL REFLUX DISEASE [None]
  - CEREBROVASCULAR ACCIDENT [None]
  - DRUG INEFFECTIVE [None]
  - MITRAL VALVE PROLAPSE [None]
  - NON-CARDIAC CHEST PAIN [None]
  - SKIN MASS [None]
  - PNEUMOTHORAX [None]
  - NECK PAIN [None]
  - HYPOAESTHESIA [None]
  - WRIST FRACTURE [None]
  - CORONARY ARTERY DISEASE [None]
  - PAIN [None]
  - ANGINA UNSTABLE [None]
  - DYSPNOEA [None]
  - RHINITIS ALLERGIC [None]
  - ARTERIOSCLEROSIS CORONARY ARTERY [None]
  - MYOCARDIAL INFARCTION [None]
  - CHOLECYSTITIS [None]
  - BREATH SOUNDS ABNORMAL [None]
  - FEMUR FRACTURE [None]
  - ADVERSE EVENT [None]
  - CARDIAC FAILURE CONGESTIVE [None]
  - HEART INJURY [None]
  - TONSILLAR DISORDER [None]
  - MAJOR DEPRESSION [None]
  - ROTATOR CUFF SYNDROME [None]
  - ARTHROPATHY [None]
  - VITAMIN K DEFICIENCY [None]
  - CEREBRAL ATROPHY [None]
  - HEAD INJURY [None]
  - VISION BLURRED [None]
  - CARDIAC MURMUR [None]
  - TRANSIENT ISCHAEMIC ATTACK [None]
  - ALCOHOL POISONING [None]
  - MITRAL VALVE INCOMPETENCE [None]
  - PRESYNCOPE [None]
  - PHYSICAL ASSAULT [None]
  - RHEUMATOID ARTHRITIS [None]
  - HAEMATOMA [None]
  - ARTHRALGIA [None]
  - MUSCULAR WEAKNESS [None]
  - ALCOHOL USE [None]
  - FEELING ABNORMAL [None]
  - FLANK PAIN [None]
  - DYSPNOEA EXERTIONAL [None]
  - LOW TURNOVER OSTEOPATHY [None]
  - DEPRESSION [None]
  - CARPAL TUNNEL SYNDROME [None]
  - CHEST PAIN [None]
  - FATIGUE [None]
  - HEADACHE [None]
  - ELECTROCARDIOGRAM ST-T CHANGE [None]
  - GASTRIC ULCER [None]
  - PAIN IN EXTREMITY [None]
  - JOINT LOCK [None]
  - SINUS BRADYCARDIA [None]
  - CHRONIC OBSTRUCTIVE PULMONARY DISEASE [None]
  - BACK PAIN [None]
  - CHEST DISCOMFORT [None]
  - PYREXIA [None]
  - SLEEP DISORDER [None]
  - PANCREATITIS ACUTE [None]
  - ALCOHOL ABUSE [None]
  - AORTIC VALVE INCOMPETENCE [None]
  - RADIUS FRACTURE [None]
  - SYNCOPE [None]
  - NAUSEA [None]
  - CHEST INJURY [None]
  - FALL [None]
  - POST-TRAUMATIC STRESS DISORDER [None]
  - HYPERCHOLESTEROLAEMIA [None]
  - GASTRITIS [None]
  - GAIT DISTURBANCE [None]
  - HYPOTENSION [None]
  - CONTUSION [None]
  - INTERVERTEBRAL DISC PROTRUSION [None]
